FAERS Safety Report 4274711-5 (Version None)
Quarter: 2004Q1

REPORT INFORMATION
  Report Type: 
  Country: None (occurrence: None)
  Receive Date: 20040115
  Receipt Date: 20031226
  Transmission Date: 20041129
  Serious: Yes (Life-Threatening)
  Sender: FDA-Public Use
  Company Number: JP_031202273

PATIENT
  Age: 62 Year
  Sex: Female
  Weight: 38 kg

DRUGS (10)
  1. GEMZAR [Suspect]
     Indication: LUNG ADENOCARCINOMA
     Dosage: 1000 MG/OTHER
     Route: 048
     Dates: start: 20030903, end: 20031022
  2. IRESSA [Concomitant]
  3. MOBIC [Concomitant]
  4. FAMOTIDINE [Concomitant]
  5. GANATON (ITOPRIDE HYDROCHLORIDE) [Concomitant]
  6. GASMOTIN (MOSAPRIDE CITRATE) [Concomitant]
  7. SLOW-K (POTASSIUM CITRATE) [Concomitant]
  8. AMOBAN (ZOPICLONE) [Concomitant]
  9. ALENDRONATE SODIUM [Concomitant]
  10. PREDNISOLONE [Concomitant]

REACTIONS (3)
  - INTERSTITIAL LUNG DISEASE [None]
  - LYMPHOCYTE STIMULATION TEST POSITIVE [None]
  - PULMONARY TOXICITY [None]
